FAERS Safety Report 20114192 (Version 3)
Quarter: 2022Q1

REPORT INFORMATION
  Report Type: Spontaneous
  Country: BR (occurrence: BR)
  Receive Date: 20211125
  Receipt Date: 20220203
  Transmission Date: 20220423
  Serious: Yes (Other)
  Sender: FDA-Public Use
  Company Number: BR-TAKEDA-2021TUS059142

PATIENT
  Sex: Female

DRUGS (2)
  1. ENTYVIO [Suspect]
     Active Substance: VEDOLIZUMAB
     Indication: Product used for unknown indication
     Dosage: 300 MILLIGRAM
     Route: 042
     Dates: start: 20210618
  2. ENTYVIO [Suspect]
     Active Substance: VEDOLIZUMAB
     Dosage: 300 MILLIGRAM, MONTHLY
     Route: 042

REACTIONS (4)
  - Haematochezia [Unknown]
  - Diarrhoea [Unknown]
  - Influenza [Unknown]
  - Drug ineffective [Unknown]
